FAERS Safety Report 15863975 (Version 2)
Quarter: 2019Q1

REPORT INFORMATION
  Report Type: Spontaneous
  Country: US (occurrence: US)
  Receive Date: 20190124
  Receipt Date: 20190226
  Transmission Date: 20190417
  Serious: Yes (Hospitalization, Other)
  Sender: FDA-Public Use
  Company Number: US-AMGEN-USASP2019009480

PATIENT
  Age: 38 Year
  Sex: Female

DRUGS (3)
  1. ADRIAMYCIN [Concomitant]
     Active Substance: DOXORUBICIN HYDROCHLORIDE
     Indication: BREAST CANCER
     Dosage: UNK UNK, Q2WK
     Dates: start: 20181207, end: 20190201
  2. CYTOXAN [Concomitant]
     Active Substance: CYCLOPHOSPHAMIDE
     Indication: BREAST CANCER
     Dosage: UNK
     Dates: start: 20190215
  3. NEULASTA [Suspect]
     Active Substance: PEGFILGRASTIM
     Indication: NEUTROPENIA
     Dosage: UNK UNK, Q2WK
     Route: 065
     Dates: start: 20181207

REACTIONS (3)
  - Maternal exposure during pregnancy [Unknown]
  - Clostridium difficile infection [Not Recovered/Not Resolved]
  - Shigella infection [Not Recovered/Not Resolved]

NARRATIVE: CASE EVENT DATE: 201812
